FAERS Safety Report 6283859-5 (Version None)
Quarter: 2009Q3

REPORT INFORMATION
  Report Type: 
  Country: None (occurrence: None)
  Receive Date: 20090723
  Receipt Date: 20090723
  Transmission Date: 20100115
  Serious: Yes (Disabling, Other)
  Sender: FDA-Public Use
  Company Number: None

PATIENT
  Age: 61 Year
  Sex: Female
  Weight: 55.7924 kg

DRUGS (3)
  1. XYZAL [Suspect]
     Indication: URTICARIA
     Dosage: 5 MG ONCE PO
     Route: 048
     Dates: start: 20041112, end: 20090722
  2. ZYRTEC [Suspect]
     Indication: URTICARIA
     Dosage: 5 MG ONCE PO
     Route: 048
     Dates: start: 20041112, end: 20090722
  3. ZANTAC 150 [Suspect]
     Indication: URTICARIA
     Dosage: 150MG ONCE PO
     Route: 048
     Dates: start: 20041112, end: 20090722

REACTIONS (5)
  - HEADACHE [None]
  - NASOPHARYNGITIS [None]
  - NO THERAPEUTIC RESPONSE [None]
  - PAIN [None]
  - WHITE BLOOD CELL COUNT DECREASED [None]
